APPROVED DRUG PRODUCT: DOXYCYCLINE
Active Ingredient: DOXYCYCLINE
Strength: EQ 50MG BASE
Dosage Form/Route: CAPSULE;ORAL
Application: A208942 | Product #001
Applicant: RISING PHARMA HOLDING INC
Approved: Jan 21, 2021 | RLD: No | RS: No | Type: DISCN